FAERS Safety Report 7721773-6 (Version None)
Quarter: 2011Q3

REPORT INFORMATION
  Report Type: 
  Country: None (occurrence: None)
  Receive Date: 20110831
  Receipt Date: 20110830
  Transmission Date: 20111222
  Serious: Yes (Death)
  Sender: FDA-Public Use
  Company Number: JP-EISAI INC-E2020-09666-CLI-JP

PATIENT
  Sex: Male
  Weight: 49 kg

DRUGS (3)
  1. ARICEPT [Suspect]
     Indication: DEMENTIA ALZHEIMER'S TYPE
     Route: 048
     Dates: start: 20090205, end: 20100202
  2. ARICEPT [Suspect]
     Route: 048
     Dates: start: 20100203, end: 20110311
  3. GRAMALIL [Concomitant]
     Indication: DEMENTIA ALZHEIMER'S TYPE
     Dosage: 150 MG
     Route: 048
     Dates: start: 20100302, end: 20110311

REACTIONS (1)
  - CARDIAC ARREST [None]
